FAERS Safety Report 7148984-5 (Version None)
Quarter: 2010Q4

REPORT INFORMATION
  Report Type: 
  Country: None (occurrence: None)
  Receive Date: 20101124
  Receipt Date: 20101101
  Transmission Date: 20110411
  Serious: Yes (Other)
  Sender: FDA-Public Use
  Company Number: 20109566

PATIENT
  Age: 58 Year
  Sex: Female

DRUGS (6)
  1. LIORESAL [Suspect]
     Indication: MUSCLE SPASTICITY
     Dosage: SEE B5 MCG, DAILY, INTRATHECAL
     Route: 039
  2. BUPIVACAINE HCL [Concomitant]
  3. FENTANYL-100 [Concomitant]
  4. CLONIDINE [Concomitant]
  5. BACLOFEN [Concomitant]
  6. DILAUDID [Concomitant]

REACTIONS (3)
  - DEVICE DISLOCATION [None]
  - FALL [None]
  - SOMNAMBULISM [None]
